FAERS Safety Report 5186323-X (Version None)
Quarter: 2006Q4

REPORT INFORMATION
  Report Type: 
  Country: None (occurrence: None)
  Receive Date: 20061220
  Receipt Date: 20061206
  Transmission Date: 20070319
  Serious: No
  Sender: FDA-Public Use
  Company Number: GB-ELI_LILLY_AND_COMPANY-GB200612000789

PATIENT
  Age: 65 Year
  Sex: Female

DRUGS (1)
  1. CIALIS [Suspect]
     Indication: PULMONARY HYPERTENSION
     Dosage: 10 MG, DAILY (1/D)
     Dates: start: 20060101

REACTIONS (3)
  - DISEASE PROGRESSION [None]
  - PULMONARY HYPERTENSION [None]
  - VISUAL DISTURBANCE [None]
